FAERS Safety Report 25591094 (Version 1)
Quarter: 2025Q3

REPORT INFORMATION
  Report Type: Spontaneous
  Country: US (occurrence: None)
  Receive Date: 20250722
  Receipt Date: 20250722
  Transmission Date: 20251020
  Serious: Yes (Hospitalization)
  Sender: FDA-CTU
  Company Number: None

PATIENT
  Age: 55 Year
  Sex: Male
  Weight: 52.9 kg

DRUGS (1)
  1. CISPLATIN [Suspect]
     Active Substance: CISPLATIN

REACTIONS (21)
  - Neck mass [None]
  - Neck injury [None]
  - Pharyngeal haemorrhage [None]
  - Thrombosis [None]
  - Hypertension [None]
  - Anaemia [None]
  - Neck pain [None]
  - Subcutaneous emphysema [None]
  - Oropharyngeal fistula [None]
  - Cardiac murmur [None]
  - Emphysema [None]
  - Computerised tomogram abnormal [None]
  - Nodule [None]
  - Thyroid gland abscess [None]
  - Arterial injury [None]
  - Headache [None]
  - Staphylococcal abscess [None]
  - Localised oedema [None]
  - Dry mouth [None]
  - Oropharyngeal pain [None]
  - Face oedema [None]

NARRATIVE: CASE EVENT DATE: 20250703
